FAERS Safety Report 10769796 (Version 2)
Quarter: 2015Q1

REPORT INFORMATION
  Report Type: Spontaneous
  Country: MY (occurrence: MY)
  Receive Date: 20150206
  Receipt Date: 20150210
  Transmission Date: 20150721
  Serious: Yes (Other)
  Sender: FDA-Public Use
  Company Number: MY-PFIZER INC-2015048912

PATIENT
  Age: 71 Year

DRUGS (6)
  1. CELEBREX [Suspect]
     Active Substance: CELECOXIB
     Indication: BACK PAIN
     Dosage: 200 MG, 2X/DAY
     Dates: start: 20140804
  2. WARFARIN [Interacting]
     Active Substance: WARFARIN
     Dosage: 2 MG, UNK
  3. TRAMADOL [Concomitant]
     Active Substance: TRAMADOL
     Indication: BACK PAIN
     Dosage: UNK
  4. KETOPROFEN. [Interacting]
     Active Substance: KETOPROFEN
     Dosage: UNK
  5. WARFARIN [Interacting]
     Active Substance: WARFARIN
     Dosage: 1.5 MG, UNK
     Dates: start: 20140801
  6. CELEBREX [Interacting]
     Active Substance: CELECOXIB
     Dosage: 400 MG, 1X/DAY
     Dates: start: 20140808

REACTIONS (5)
  - International normalised ratio increased [Unknown]
  - Drug ineffective [Unknown]
  - Drug interaction [Unknown]
  - Anticoagulation drug level above therapeutic [Unknown]
  - Upper gastrointestinal haemorrhage [Unknown]

NARRATIVE: CASE EVENT DATE: 201408
